FAERS Safety Report 9974414 (Version 1)
Quarter: 2014Q1

REPORT INFORMATION
  Report Type: Report from Study
  Country: US (occurrence: US)
  Receive Date: 20140306
  Receipt Date: 20140306
  Transmission Date: 20141002
  Serious: No
  Sender: FDA-Public Use
  Company Number: US-ABBVIE-13P-163-1156184-00

PATIENT
  Sex: Female

DRUGS (3)
  1. HUMIRA [Suspect]
     Indication: COLITIS ULCERATIVE
     Dates: start: 20130628
  2. LIALDA [Concomitant]
     Indication: COLITIS ULCERATIVE
     Dosage: DAILY
  3. IRON [Concomitant]
     Indication: MINERAL SUPPLEMENTATION
     Dosage: DAILY

REACTIONS (1)
  - Abdominal tenderness [Not Recovered/Not Resolved]
